FAERS Safety Report 15994452 (Version 1)
Quarter: 2019Q1

REPORT INFORMATION
  Report Type: Spontaneous
  Country: FR (occurrence: FR)
  Receive Date: 20190222
  Receipt Date: 20190222
  Transmission Date: 20190418
  Serious: Yes (Hospitalization)
  Sender: FDA-Public Use
  Company Number: FR-BAUSCH-BL-2019-005253

PATIENT
  Age: 51 Year
  Sex: Male
  Weight: 110 kg

DRUGS (5)
  1. ZOLPIDEM [Suspect]
     Active Substance: ZOLPIDEM\ZOLPIDEM TARTRATE
     Indication: POISONING DELIBERATE
     Route: 048
     Dates: start: 20180924, end: 20180924
  2. AMISULPRIDE [Suspect]
     Active Substance: AMISULPRIDE
     Indication: POISONING DELIBERATE
     Route: 048
     Dates: start: 20180924, end: 20180924
  3. IRBESARTAN. [Suspect]
     Active Substance: IRBESARTAN
     Indication: POISONING DELIBERATE
     Route: 048
     Dates: start: 20180924, end: 20180924
  4. METFORMINE [Suspect]
     Active Substance: METFORMIN HYDROCHLORIDE
     Indication: POISONING DELIBERATE
     Route: 048
     Dates: start: 20180924, end: 20180924
  5. LOGIMAX [Suspect]
     Active Substance: FELODIPINE\METOPROLOL SUCCINATE
     Indication: POISONING DELIBERATE
     Dosage: 5 MG/47,5 MG, PROLONGED-RELEASE FILM-COATED TABLET
     Route: 048
     Dates: start: 20180924, end: 20180924

REACTIONS (5)
  - Hypotension [Recovered/Resolved]
  - Acute kidney injury [Recovered/Resolved]
  - Disorientation [Recovered/Resolved]
  - Vomiting [Recovered/Resolved]
  - Hyperlactacidaemia [Recovered/Resolved]

NARRATIVE: CASE EVENT DATE: 20180924
